FAERS Safety Report 6373191-3 (Version None)
Quarter: 2009Q3

REPORT INFORMATION
  Report Type: 
  Country: None (occurrence: None)
  Receive Date: 20090924
  Receipt Date: 20090107
  Transmission Date: 20100115
  Serious: No
  Sender: FDA-Public Use
  Company Number: US-ASTRAZENECA-2009UW00609

PATIENT
  Age: 17 Year
  Sex: Male
  Weight: 81.6 kg

DRUGS (5)
  1. SEROQUEL [Suspect]
     Indication: AFFECTIVE DISORDER
     Route: 048
  2. SEROQUEL [Suspect]
     Indication: SLEEP DISORDER
     Route: 048
  3. SEROQUEL [Suspect]
     Route: 048
  4. SEROQUEL [Suspect]
     Route: 048
  5. LEXAPRO [Concomitant]
     Indication: DEPRESSION
     Route: 048

REACTIONS (3)
  - BLOOD TRIGLYCERIDES INCREASED [None]
  - BLOOD URIC ACID INCREASED [None]
  - DRUG SCREEN POSITIVE [None]
